FAERS Safety Report 7237342-0 (Version None)
Quarter: 2011Q1

REPORT INFORMATION
  Report Type: 
  Country: None (occurrence: None)
  Receive Date: 20110121
  Receipt Date: 20100315
  Transmission Date: 20110831
  Serious: No
  Sender: FDA-Public Use
  Company Number: A0850237A

PATIENT
  Sex: Female

DRUGS (2)
  1. MEPRON [Suspect]
     Dosage: 750MG TWICE PER DAY
     Route: 048
     Dates: start: 20100302
  2. AZITHROMYCIN [Concomitant]

REACTIONS (2)
  - RASH [None]
  - PRURITUS [None]
